FAERS Safety Report 24641820 (Version 2)
Quarter: 2025Q1

REPORT INFORMATION
  Report Type: Spontaneous
  Country: JP (occurrence: JP)
  Receive Date: 20241120
  Receipt Date: 20250131
  Transmission Date: 20250408
  Serious: Yes (Hospitalization)
  Sender: NOVARTIS
  Company Number: JP-002147023-NVSJ2024JP013504

PATIENT
  Age: 2 Year
  Sex: Female

DRUGS (4)
  1. NEORAL [Suspect]
     Active Substance: CYCLOSPORINE
     Indication: Kawasaki^s disease
     Route: 048
     Dates: start: 20240323, end: 20240328
  2. NEORAL [Suspect]
     Active Substance: CYCLOSPORINE
     Route: 048
     Dates: start: 20240329, end: 20240422
  3. ASPIRIN [Suspect]
     Active Substance: ASPIRIN
     Indication: Kawasaki^s disease
     Route: 065
     Dates: end: 20240418
  4. INFLIXIMAB [Concomitant]
     Active Substance: INFLIXIMAB
     Indication: Kawasaki^s disease
     Route: 065

REACTIONS (5)
  - Drug reaction with eosinophilia and systemic symptoms [Recovered/Resolved]
  - Pyrexia [Recovered/Resolved]
  - Pruritus [Unknown]
  - Erythema [Recovering/Resolving]
  - Drug eruption [Recovering/Resolving]

NARRATIVE: CASE EVENT DATE: 20240404
